FAERS Safety Report 9417198 (Version 1)
Quarter: 2013Q3

REPORT INFORMATION
  Report Type: Spontaneous
  Country: DK (occurrence: DK)
  Receive Date: 20130722
  Receipt Date: 20130722
  Transmission Date: 20140520
  Serious: Yes (Hospitalization)
  Sender: FDA-Public Use
  Company Number: FK201302588

PATIENT
  Age: 17 Year
  Sex: Male

DRUGS (6)
  1. CISPLATIN [Suspect]
     Indication: HEPATOCELLULAR CARCINOMA
  2. GEMCITABINE [Suspect]
     Indication: HEPATOCELLULAR CARCINOMA
     Dosage: 1000 MG/M2, DAY 1 AND 8 1000 MG/M2, EVERY 2ND WEEK
  3. OXALIPLATIN [Suspect]
     Indication: HEPATOCELLULAR CARCINOMA
  4. TAXOL [Suspect]
     Indication: HEPATOCELLULAR CARCINOMA
     Dosage: 175 MG/M**2 DAY 1 IN A 3- WEEK CYCLE
  5. SORAFENIB [Suspect]
     Indication: HEPATOCELLULAR CARCINOMA
     Dosage: 200 MG DAILY DOSAGE ADMINISTERED FOR 2 WEEKS AFTER A 4-WEEK BREAK, THEN ESCALATED TO 400 MG DAILY.
  6. ERLOTINIB [Concomitant]

REACTIONS (10)
  - Alopecia [None]
  - Anaemia [None]
  - Decreased appetite [None]
  - Diarrhoea [None]
  - Rash [None]
  - Neutropenia [None]
  - Paraesthesia [None]
  - Pruritus [None]
  - Tinnitus [None]
  - Vomiting [None]
